FAERS Safety Report 5291812-3 (Version None)
Quarter: 2007Q2

REPORT INFORMATION
  Report Type: 
  Country: None (occurrence: None)
  Receive Date: 20070406
  Receipt Date: 20070406
  Transmission Date: 20071010
  Serious: Yes (Life-Threatening)
  Sender: FDA-Public Use
  Company Number: None

PATIENT
  Age: 49 Year
  Sex: Female
  Weight: 72.1219 kg

DRUGS (2)
  1. AVASTIN [Suspect]
     Indication: BREAST CANCER METASTATIC
     Dosage: 370 MG Q 2 WKS IV
     Route: 042
     Dates: start: 20060815, end: 20061127
  2. AVASTIN [Suspect]
     Indication: BREAST CANCER METASTATIC
     Dosage: 1050 MG Q 3 WKS IV
     Route: 042
     Dates: start: 20061227, end: 20070219

REACTIONS (6)
  - ASCITES [None]
  - HEPATIC CIRRHOSIS [None]
  - HYPERSPLENISM [None]
  - PANCYTOPENIA [None]
  - PORTAL HYPERTENSION [None]
  - SPLENOMEGALY [None]
